FAERS Safety Report 18296116 (Version 1)
Quarter: 2020Q3

REPORT INFORMATION
  Report Type: Spontaneous
  Country: US (occurrence: US)
  Receive Date: 20200922
  Receipt Date: 20200922
  Transmission Date: 20201103
  Serious: No
  Sender: FDA-Public Use
  Company Number: US-009507513-2009USA008008

PATIENT
  Sex: Female
  Weight: 97.05 kg

DRUGS (1)
  1. NEXPLANON [Suspect]
     Active Substance: ETONOGESTREL
     Indication: CONTRACEPTION
     Dosage: 1 DOSAGE FORM IN THE LEFT ARM
     Route: 059
     Dates: start: 20200812, end: 20200918

REACTIONS (4)
  - Complication of device removal [Recovered/Resolved]
  - Implant site infection [Not Recovered/Not Resolved]
  - Implant site cellulitis [Unknown]
  - Administration site granuloma [Unknown]

NARRATIVE: CASE EVENT DATE: 2020
